FAERS Safety Report 10595633 (Version 6)
Quarter: 2015Q2

REPORT INFORMATION
  Report Type: Report from Study
  Country: IT (occurrence: IT)
  Receive Date: 20141120
  Receipt Date: 20150520
  Transmission Date: 20150821
  Serious: Yes (Hospitalization, Other)
  Sender: FDA-Public Use
  Company Number: IT-CELGENE-083-C5013-14042175

PATIENT
  Age: 81 Year
  Sex: Male
  Weight: 72 kg

DRUGS (15)
  1. NORVASC [Concomitant]
     Active Substance: AMLODIPINE BESYLATE
     Indication: HYPERTENSION
     Dosage: 10 MILLIGRAM
     Route: 065
     Dates: start: 200601
  2. ALLOPURINOL. [Concomitant]
     Active Substance: ALLOPURINOL
     Indication: HYPERURICAEMIA
     Dosage: 300 MILLIGRAM
     Route: 065
     Dates: start: 20120514
  3. MELPHALAN [Suspect]
     Active Substance: MELPHALAN
     Indication: PLASMA CELL MYELOMA
     Dosage: 14 MILLIGRAM
     Route: 065
     Dates: start: 20080415, end: 20090119
  4. ASPIRIN. [Concomitant]
     Active Substance: ASPIRIN
     Indication: THROMBOSIS PROPHYLAXIS
     Route: 065
     Dates: start: 199001
  5. LASIX [Concomitant]
     Active Substance: FUROSEMIDE
     Indication: HYPERTENSION
     Dosage: 25 MILLIGRAM
     Route: 065
     Dates: start: 20080214
  6. ESKIM [Concomitant]
     Active Substance: OMEGA-3 FATTY ACIDS
     Indication: HYPERTRIGLYCERIDAEMIA
     Dosage: 2 DOSAGE FORMS
     Route: 065
     Dates: start: 200501
  7. NOVONORM [Concomitant]
     Active Substance: REPAGLINIDE
     Indication: DIABETES MELLITUS
     Dosage: 20 MILLIGRAM
     Route: 065
     Dates: start: 20111210
  8. CC-5013 [Suspect]
     Active Substance: LENALIDOMIDE
     Route: 048
     Dates: start: 20080415, end: 20090119
  9. CARDURA [Concomitant]
     Active Substance: DOXAZOSIN MESYLATE
     Indication: HYPERTENSION
     Dosage: 4 MILLIGRAM
     Route: 065
     Dates: start: 201205
  10. MITTOVAL [Concomitant]
     Active Substance: ALFUZOSIN HYDROCHLORIDE
     Indication: BENIGN PROSTATIC HYPERPLASIA
     Dosage: 1 DOSAGE FORMS
     Route: 065
     Dates: start: 201205
  11. CC-5013 [Suspect]
     Active Substance: LENALIDOMIDE
     Indication: PLASMA CELL MYELOMA
     Route: 048
     Dates: start: 20090305, end: 20140407
  12. PREDNISONE. [Suspect]
     Active Substance: PREDNISONE
     Indication: PLASMA CELL MYELOMA
     Dosage: 160 MILLIGRAM
     Route: 065
     Dates: start: 20080415, end: 20090119
  13. TORVAST [Concomitant]
     Active Substance: ATORVASTATIN
     Indication: HYPERCHOLESTEROLAEMIA
     Dosage: 20 MILLIGRAM
     Route: 065
     Dates: start: 200401
  14. CC-5013 [Suspect]
     Active Substance: LENALIDOMIDE
     Route: 048
     Dates: end: 20140509
  15. EPREX [Concomitant]
     Active Substance: ERYTHROPOIETIN
     Indication: ANAEMIA
     Route: 065
     Dates: start: 20100223

REACTIONS (1)
  - Nasal cavity cancer [Recovered/Resolved]

NARRATIVE: CASE EVENT DATE: 201402
